FAERS Safety Report 4996580-8 (Version None)
Quarter: 2006Q2

REPORT INFORMATION
  Report Type: 
  Country: None (occurrence: None)
  Receive Date: 20060505
  Receipt Date: 20060406
  Transmission Date: 20061013
  Serious: Yes (Other)
  Sender: FDA-Public Use
  Company Number: 2006057933

PATIENT
  Age: 27 Year
  Sex: Female

DRUGS (4)
  1. VIRACEPT [Suspect]
     Indication: HIV INFECTION
     Dosage: 2500 MG, ORAL
     Route: 048
     Dates: start: 20051114
  2. COMBIVIR [Suspect]
     Indication: HIV INFECTION
     Dosage: 900 MG, ORAL
     Route: 048
     Dates: start: 20051114, end: 20060106
  3. ZERIT [Suspect]
     Indication: HIV INFECTION
     Dosage: 80 MG, ORAL
     Route: 048
     Dates: start: 20060109
  4. EPIVIR [Suspect]
     Indication: HIV INFECTION
     Dosage: 300 MG, ORAL
     Route: 048
     Dates: start: 20060109

REACTIONS (6)
  - ANAEMIA [None]
  - BONE MARROW TOXICITY [None]
  - DRUG EXPOSURE DURING PREGNANCY [None]
  - HERPES SIMPLEX [None]
  - PREGNANCY [None]
  - STILLBIRTH [None]
